FAERS Safety Report 6533389 (Version 6)
Quarter: 2013Q4

REPORT INFORMATION
  Report Type: Spontaneous
  Country: JP (occurrence: JP)
  Receive Date: 20080123
  Receipt Date: 20131121
  Transmission Date: 20140711
  Serious: Yes (Life-Threatening, Hospitalization, Other)
  Sender: FDA-Public Use
  Company Number: JP-PFIZER INC-2008004200

PATIENT
  Age: 68 Year
  Sex: Female

DRUGS (8)
  1. NORVASC [Suspect]
     Indication: HYPERTENSION
     Dosage: 5 MG, DAILY
     Route: 048
     Dates: start: 20050613, end: 20080117
  2. NORVASC [Suspect]
     Dosage: 5 MG, DAILY
     Route: 048
     Dates: start: 20080120, end: 20080208
  3. DEPAS [Suspect]
     Indication: INSOMNIA
     Dosage: 0.5 MG, 2X/DAY
     Route: 048
     Dates: start: 20050613, end: 20080117
  4. DEPAS [Suspect]
     Indication: ANXIETY
     Dosage: 0.5 MG, 2X/DAY
     Route: 048
     Dates: start: 20080124, end: 20080208
  5. DIOVAN ^NOVARTIS^ [Suspect]
     Indication: HYPERTENSION
     Dosage: 160 MG, DAILY
     Route: 048
     Dates: start: 20050613
  6. MAINTATE [Suspect]
     Indication: HYPERTENSION
     Dosage: 2.5 MG, 1X/DAY
     Route: 048
     Dates: start: 20050613
  7. LOCHOL [Suspect]
     Indication: LIPIDS ABNORMAL
     Dosage: 30 MG, 1X/DAY
     Route: 048
     Dates: start: 20050725, end: 20080208
  8. BAYASPIRIN [Suspect]
     Indication: LACUNAR INFARCTION
     Dosage: 100 MG, 1X/DAY
     Route: 048
     Dates: start: 20060912, end: 20080104

REACTIONS (4)
  - Thrombocytopenia [Recovering/Resolving]
  - Haemoptysis [Unknown]
  - Epistaxis [Unknown]
  - Haemorrhage subcutaneous [Unknown]
